FAERS Safety Report 5735408-5 (Version None)
Quarter: 2008Q2

REPORT INFORMATION
  Report Type: 
  Country: None (occurrence: None)
  Receive Date: 20080508
  Receipt Date: 20080508
  Transmission Date: 20081010
  Serious: Yes (Other)
  Sender: FDA-Public Use
  Company Number: None

PATIENT
  Age: 50 Year
  Sex: Female
  Weight: 53.0709 kg

DRUGS (1)
  1. CREST PRO-HEALTH RINSE CREST [Suspect]
     Indication: DENTAL DISORDER PROPHYLAXIS
     Dosage: 20ML ONCE DAILY PO
     Route: 048
     Dates: start: 20070615, end: 20070709

REACTIONS (1)
  - TOOTH DISCOLOURATION [None]
